FAERS Safety Report 4466477-0 (Version None)
Quarter: 2004Q3

REPORT INFORMATION
  Report Type: 
  Country: None (occurrence: None)
  Receive Date: 20040930
  Receipt Date: 20040921
  Transmission Date: 20050211
  Serious: Yes (Other)
  Sender: FDA-Public Use
  Company Number: 2004225276US

PATIENT
  Age: 80 Year
  Sex: Female
  Weight: 79.4 kg

DRUGS (5)
  1. CELEBREX [Suspect]
     Indication: OSTEOARTHRITIS
     Dosage: 200 MG, ORAL
     Route: 048
     Dates: start: 20040201, end: 20040325
  2. DIOVAN [Concomitant]
  3. TAMOXIFEN CITRATE [Concomitant]
  4. FUROSEMIDE [Concomitant]
  5. GLUCOTROL [Concomitant]

REACTIONS (1)
  - HAEMORRHAGE [None]
